FAERS Safety Report 19373225 (Version 4)
Quarter: 2021Q4

REPORT INFORMATION
  Report Type: Spontaneous
  Country: US (occurrence: US)
  Receive Date: 20210604
  Receipt Date: 20211025
  Transmission Date: 20220303
  Serious: Yes (Hospitalization)
  Sender: FDA-Public Use
  Company Number: NVSC2021US119389

PATIENT
  Sex: Female

DRUGS (1)
  1. KESIMPTA [Suspect]
     Active Substance: OFATUMUMAB
     Indication: Multiple sclerosis
     Dosage: UNK
     Route: 065
     Dates: start: 20210505

REACTIONS (7)
  - Multiple sclerosis relapse [Unknown]
  - Stress [Unknown]
  - Gait disturbance [Unknown]
  - Speech disorder [Unknown]
  - Sensory loss [Unknown]
  - Tremor [Unknown]
  - Thyroid disorder [Unknown]
